FAERS Safety Report 5362276-6 (Version None)
Quarter: 2007Q2

REPORT INFORMATION
  Report Type: 
  Country: None (occurrence: None)
  Receive Date: 20070619
  Receipt Date: 20070615
  Transmission Date: 20071010
  Serious: Yes (Death, Hospitalization)
  Sender: FDA-Public Use
  Company Number: A0624645A

PATIENT
  Age: 27 Year
  Sex: Male
  Weight: 81.8 kg

DRUGS (13)
  1. WELLBUTRIN XL [Suspect]
     Indication: DEPRESSION
     Dosage: 300MG PER DAY
     Route: 048
     Dates: start: 20040210, end: 20040901
  2. BUPROPION HYDROCHLORIDE [Suspect]
     Indication: DEPRESSION
     Dosage: 75MG IN THE MORNING
     Route: 048
     Dates: start: 20040101, end: 20040210
  3. BUPROPION HYDROCHLORIDE [Suspect]
     Route: 048
     Dates: start: 20040819
  4. EFFEXOR XR [Suspect]
     Indication: DEPRESSION
     Route: 048
     Dates: start: 20040623
  5. ACETAMINOPHEN [Suspect]
     Indication: INTENTIONAL OVERDOSE
     Route: 048
  6. ALCOHOL [Suspect]
     Route: 048
  7. XANAX [Concomitant]
  8. ZYPREXA [Concomitant]
  9. TEGRETOL [Concomitant]
  10. DEPAKOTE [Concomitant]
  11. TRILEPTAL [Concomitant]
  12. DARVOCET [Concomitant]
  13. AMBIEN [Concomitant]

REACTIONS (20)
  - ASPIRATION [None]
  - CARDIAC ARREST [None]
  - CARDIO-RESPIRATORY ARREST [None]
  - COMPLETED SUICIDE [None]
  - CONVERSION DISORDER [None]
  - DEPRESSED LEVEL OF CONSCIOUSNESS [None]
  - DEPRESSION [None]
  - DRUG TOXICITY [None]
  - EATING DISORDER [None]
  - FEELING OF DESPAIR [None]
  - HEADACHE [None]
  - INSOMNIA [None]
  - LOGORRHOEA [None]
  - MANIA [None]
  - MULTIPLE DRUG OVERDOSE INTENTIONAL [None]
  - PSYCHOMOTOR HYPERACTIVITY [None]
  - SUICIDAL BEHAVIOUR [None]
  - SUICIDAL IDEATION [None]
  - TREATMENT NONCOMPLIANCE [None]
  - VOMITING [None]
